FAERS Safety Report 4822326-X (Version None)
Quarter: 2005Q4

REPORT INFORMATION
  Report Type: 
  Country: None (occurrence: None)
  Receive Date: 20051103
  Receipt Date: 20051021
  Transmission Date: 20060501
  Serious: Yes (Hospitalization)
  Sender: FDA-Public Use
  Company Number: 200509IM000543

PATIENT

DRUGS (12)
  1. INFERGEN [Suspect]
     Indication: HEPATITIS C
     Dosage: 9 UG, QD, SUBCUTANEOUS
     Route: 058
     Dates: start: 20050909, end: 20051020
  2. INFERGEN [Suspect]
  3. COPEGUS [Concomitant]
  4. NEXIUM [Concomitant]
  5. HYDROCHLOROTHIAZIDE [Concomitant]
  6. FLOMAX [Concomitant]
  7. BAPENTIN [Concomitant]
  8. GLUCOPHAGE [Concomitant]
  9. ASPIRIN [Concomitant]
  10. ATACAND [Concomitant]
  11. TRAMADOL HCL [Concomitant]
  12. ALLEGRA [Concomitant]

REACTIONS (5)
  - ANOREXIA [None]
  - CHEST PAIN [None]
  - CONSTIPATION [None]
  - MUSCLE STRAIN [None]
  - URINARY RETENTION [None]
